FAERS Safety Report 7163868-4 (Version None)
Quarter: 2010Q4

REPORT INFORMATION
  Report Type: 
  Country: None (occurrence: None)
  Receive Date: 20101215
  Receipt Date: 20100626
  Transmission Date: 20110411
  Serious: Yes (Disabling, Other)
  Sender: FDA-Public Use
  Company Number: US-PFIZER INC-2010067043

PATIENT
  Sex: Female
  Weight: 99.773 kg

DRUGS (5)
  1. LYRICA [Suspect]
     Indication: FIBROMYALGIA
     Dosage: UNK MG, UNK
     Route: 048
     Dates: start: 20080101
  2. GABAPENTIN [Suspect]
     Indication: FIBROMYALGIA
     Dosage: UNK MG, UNK
     Route: 048
  3. EFFEXOR [Suspect]
     Indication: FIBROMYALGIA
     Dosage: UNK MG, UNK
     Route: 048
  4. REGLAN [Suspect]
     Indication: GASTROOESOPHAGEAL REFLUX DISEASE
     Dosage: UNK MG, UNK
     Route: 048
  5. PRILOSEC [Suspect]
     Indication: GASTROOESOPHAGEAL REFLUX DISEASE
     Dosage: UNK MG, UNK
     Route: 048

REACTIONS (11)
  - BACK DISORDER [None]
  - BALANCE DISORDER [None]
  - CONDITION AGGRAVATED [None]
  - DYSKINESIA [None]
  - EYE DISORDER [None]
  - HEAD TITUBATION [None]
  - NERVOUS SYSTEM DISORDER [None]
  - PARAESTHESIA [None]
  - PARKINSONISM [None]
  - SLEEP DISORDER [None]
  - SPASMODIC DYSPHONIA [None]
